FAERS Safety Report 25454318 (Version 2)
Quarter: 2025Q2

REPORT INFORMATION
  Report Type: Report from Study
  Country: US (occurrence: US)
  Receive Date: 20250619
  Receipt Date: 20250625
  Transmission Date: 20250717
  Serious: Yes (Hospitalization)
  Sender: ABBVIE
  Company Number: US-ABBVIE-6333313

PATIENT
  Age: 84 Year
  Sex: Male

DRUGS (1)
  1. VYALEV [Suspect]
     Active Substance: FOSCARBIDOPA\FOSLEVODOPA
     Indication: Parkinson^s disease
     Route: 058
     Dates: start: 20250612, end: 20250618

REACTIONS (2)
  - Panic attack [Recovering/Resolving]
  - Dyskinesia [Recovered/Resolved]

NARRATIVE: CASE EVENT DATE: 20250613
